FAERS Safety Report 19589086 (Version 1)
Quarter: 2021Q3

REPORT INFORMATION
  Report Type: Spontaneous
  Country: CA (occurrence: CA)
  Receive Date: 20210721
  Receipt Date: 20210721
  Transmission Date: 20211014
  Serious: Yes (Other)
  Sender: FDA-Public Use
  Company Number: CA-PFIZER INC-2021862380

PATIENT
  Age: 61 Year
  Sex: Female

DRUGS (3)
  1. PREDNISONE. [Concomitant]
     Active Substance: PREDNISONE
     Dosage: 10 MG, DAILY
     Dates: start: 20210714
  2. CELEBREX [Suspect]
     Active Substance: CELECOXIB
     Indication: ARTHRITIS
     Dosage: DOSAGE INFORMATION NOT AVAILABLE
     Route: 065
  3. PREDNISONE. [Concomitant]
     Active Substance: PREDNISONE
     Dosage: DOSAGE INFORMATION NOT AVAILABLE
     Route: 065

REACTIONS (3)
  - Arthralgia [Unknown]
  - Therapeutic product effect incomplete [Unknown]
  - Inflammation [Unknown]
